FAERS Safety Report 6033508-6 (Version None)
Quarter: 2009Q1

REPORT INFORMATION
  Report Type: 
  Country: None (occurrence: None)
  Receive Date: 20090109
  Receipt Date: 20081224
  Transmission Date: 20090719
  Serious: No
  Sender: FDA-Public Use
  Company Number: US-B.I. PHARMACEUTICALS,INC./RIDGEFIELD-2008-BP-19088BP

PATIENT
  Age: 61 Year
  Sex: Female

DRUGS (5)
  1. AGGRENOX [Suspect]
     Indication: CEREBROVASCULAR ACCIDENT PROPHYLAXIS
     Route: 048
  2. RECLAST [Concomitant]
     Indication: OSTEOPOROSIS
  3. ASPIRIN [Concomitant]
     Indication: CEREBROVASCULAR ACCIDENT
  4. INSULIN [Concomitant]
     Indication: DIABETES MELLITUS
  5. SYNTHROID [Concomitant]
     Indication: THYROID DISORDER

REACTIONS (1)
  - PAIN IN EXTREMITY [None]
